FAERS Safety Report 24360170 (Version 2)
Quarter: 2024Q4

REPORT INFORMATION
  Report Type: Spontaneous
  Country: US (occurrence: US)
  Receive Date: 20240925
  Receipt Date: 20241112
  Transmission Date: 20250115
  Serious: No
  Sender: GLAXOSMITHKLINE
  Company Number: US-GSKCCFUS-Case-02106605_AE-116297

PATIENT
  Age: 64 Year
  Sex: Female

DRUGS (1)
  1. NUCALA [Suspect]
     Active Substance: MEPOLIZUMAB
     Indication: Asthma
     Dosage: 100 MG/ML
     Route: 058

REACTIONS (3)
  - Intercepted product administration error [Unknown]
  - Product storage error [Unknown]
  - Product complaint [Unknown]

NARRATIVE: CASE EVENT DATE: 20240918
